FAERS Safety Report 26197040 (Version 1)
Quarter: 2025Q4

REPORT INFORMATION
  Report Type: Spontaneous
  Country: EU (occurrence: EU)
  Receive Date: 20251224
  Receipt Date: 20251224
  Transmission Date: 20260118
  Serious: Yes (Life-Threatening, Hospitalization)
  Sender: ELI LILLY AND COMPANY
  Company Number: None

PATIENT
  Age: 47 Year
  Sex: Male
  Weight: 125 kg

DRUGS (4)
  1. MOUNJARO [Suspect]
     Active Substance: TIRZEPATIDE
     Indication: Weight control
     Dosage: 7.5 MG, WEEKLY (1/W)
     Route: 030
     Dates: start: 20250523, end: 20251116
  2. HYDROCHLOROTHIAZIDE\LOSARTAN [Concomitant]
     Active Substance: HYDROCHLOROTHIAZIDE\LOSARTAN
     Indication: Hypertension
     Dosage: 100MG/25MG, 1 TABLET DAILY
     Route: 048
     Dates: start: 2023
  3. MAGNESIO [MAGNESIUM OXIDE] [Concomitant]
     Indication: Muscle fatigue
     Dosage: 400MG/1030MG/6MG/1,4MG/80MG, UNKNOWN
     Route: 065
     Dates: start: 2022
  4. VITAMIN B [Concomitant]
     Active Substance: VITAMIN B
     Indication: Muscle fatigue
     Dosage: 400MG/1030MG/6MG/1,4MG/80MG, UNKNOWN

REACTIONS (3)
  - Jaundice [Recovered/Resolved]
  - Pancreatitis [Recovering/Resolving]
  - Incorrect route of product administration [Unknown]

NARRATIVE: CASE EVENT DATE: 20251019
